FAERS Safety Report 9843663 (Version 1)
Quarter: 2013Q4

REPORT INFORMATION
  Report Type: Spontaneous
  Country: US (occurrence: None)
  Receive Date: 20131223
  Receipt Date: 20131223
  Transmission Date: 20140711
  Serious: Yes (Other)
  Sender: FDA-Public Use
  Company Number: 219757LEO

PATIENT
  Age: 60 Year
  Sex: Female

DRUGS (3)
  1. PICATO [Suspect]
     Indication: ACTINIC KERATOSIS
     Route: 061
     Dates: start: 20121122, end: 20121124
  2. ACYCLOVIR (ACICLOVIR) (ACICLOVIR) [Concomitant]
  3. VICODIN (VICODIN) [Concomitant]

REACTIONS (8)
  - Erythema [None]
  - Blister [None]
  - Skin exfoliation [None]
  - Application site exfoliation [None]
  - Application site haemorrhage [None]
  - Application site pain [None]
  - Application site scab [None]
  - Application site swelling [None]
